FAERS Safety Report 7981303-0 (Version None)
Quarter: 2011Q4

REPORT INFORMATION
  Report Type: 
  Country: None (occurrence: None)
  Receive Date: 20111213
  Receipt Date: 20111205
  Transmission Date: 20120403
  Serious: Yes (Hospitalization, Other)
  Sender: FDA-Public Use
  Company Number: AUR-APL-2011-06069

PATIENT
  Age: 28 Year
  Sex: Female

DRUGS (1)
  1. AMLODIPINE [Suspect]
     Indication: SUICIDE ATTEMPT
     Dosage: 50 DOSAGE FORMS, ORAL
     Route: 048

REACTIONS (18)
  - COLD SWEAT [None]
  - HAEMOGLOBIN DECREASED [None]
  - CREPITATIONS [None]
  - TACHYPNOEA [None]
  - RENAL FAILURE [None]
  - SINUS TACHYCARDIA [None]
  - ACUTE RESPIRATORY DISTRESS SYNDROME [None]
  - METABOLIC ACIDOSIS [None]
  - HYPERKALAEMIA [None]
  - NON-CARDIOGENIC PULMONARY OEDEMA [None]
  - PRODUCTIVE COUGH [None]
  - BLOOD GLUCOSE INCREASED [None]
  - DIZZINESS [None]
  - HYPOTENSION [None]
  - LETHARGY [None]
  - FLUID OVERLOAD [None]
  - PALLOR [None]
  - HAEMODIALYSIS [None]
